FAERS Safety Report 10195189 (Version 1)
Quarter: 2014Q2

REPORT INFORMATION
  Report Type: Spontaneous
  Country: US (occurrence: US)
  Receive Date: 20140526
  Receipt Date: 20140526
  Transmission Date: 20141212
  Serious: No
  Sender: FDA-Public Use
  Company Number: US-009507513-1405USA010398

PATIENT
  Sex: Male

DRUGS (6)
  1. SINGULAIR [Suspect]
     Dosage: UNK
     Route: 048
  2. NASONEX [Suspect]
     Dosage: UNK
  3. FLUOCINONIDE [Concomitant]
     Dosage: UNK
  4. ALBUTEROL [Concomitant]
     Dosage: UNK
  5. NEXIUM [Concomitant]
  6. ADVAIR [Concomitant]
     Dosage: UNK

REACTIONS (1)
  - Drug ineffective [Not Recovered/Not Resolved]
